FAERS Safety Report 8548286-6 (Version None)
Quarter: 2012Q3

REPORT INFORMATION
  Report Type: 
  Country: None (occurrence: None)
  Receive Date: 20120711
  Receipt Date: 20120705
  Transmission Date: 20120928
  Serious: Yes (Death, Hospitalization)
  Sender: FDA-Public Use
  Company Number: 2012ST000531

PATIENT
  Age: 71 Year
  Sex: Female

DRUGS (1)
  1. MATULANE [Suspect]
     Indication: NON-HODGKIN'S LYMPHOMA
     Dosage: 50 MG; QD; PO
     Route: 048
     Dates: start: 20120125

REACTIONS (7)
  - PYREXIA [None]
  - NEUTROPENIA [None]
  - ATRIAL FIBRILLATION [None]
  - RESPIRATORY FAILURE [None]
  - HYPOXIA [None]
  - SEPSIS SYNDROME [None]
  - PNEUMONIA [None]
